FAERS Safety Report 15887825 (Version 2)
Quarter: 2019Q3

REPORT INFORMATION
  Report Type: Spontaneous
  Country: US (occurrence: US)
  Receive Date: 20190130
  Receipt Date: 20190801
  Transmission Date: 20191004
  Serious: Yes (Other)
  Sender: FDA-Public Use
  Company Number: US-ASTRAZENECA-2019SE11220

PATIENT
  Age: 24899 Day
  Sex: Male
  Weight: 90.7 kg

DRUGS (41)
  1. FLUTICASONE. [Concomitant]
     Active Substance: FLUTICASONE
     Dates: start: 20100425
  2. SPIRIVA [Concomitant]
     Active Substance: TIOTROPIUM BROMIDE MONOHYDRATE
     Dates: start: 20100501
  3. IPRATROPIUM [Concomitant]
     Active Substance: IPRATROPIUM
     Dates: start: 20100505
  4. METOPROLOL. [Concomitant]
     Active Substance: METOPROLOL
     Dates: start: 20110305
  5. CLOBETASOL [Concomitant]
     Active Substance: CLOBETASOL
     Dates: start: 20100425
  6. DICLOFENAC [Concomitant]
     Active Substance: DICLOFENAC
     Dates: start: 20100425
  7. LIPITOR [Concomitant]
     Active Substance: ATORVASTATIN CALCIUM
     Dates: start: 20100305
  8. VITAMIN B NOS [Concomitant]
     Active Substance: VITAMIN B
     Dates: start: 20110514
  9. SYMBICORT [Concomitant]
     Active Substance: BUDESONIDE\FORMOTEROL FUMARATE DIHYDRATE
     Indication: ASTHMA
     Dates: start: 20100325
  10. CRESTOR [Concomitant]
     Active Substance: ROSUVASTATIN CALCIUM
     Indication: BLOOD CHOLESTEROL
     Dates: start: 20100425
  11. SULFAMETHOXAZOLE [Concomitant]
     Active Substance: SULFAMETHOXAZOLE
     Dates: start: 20100425
  12. NEXIUM [Suspect]
     Active Substance: ESOMEPRAZOLE MAGNESIUM
     Indication: DYSPEPSIA
     Route: 048
     Dates: start: 2010, end: 2015
  13. NEXIUM [Suspect]
     Active Substance: ESOMEPRAZOLE MAGNESIUM
     Indication: DYSPEPSIA
     Route: 048
     Dates: start: 2008, end: 2011
  14. NEXIUM [Suspect]
     Active Substance: ESOMEPRAZOLE MAGNESIUM
     Indication: DYSPEPSIA
     Dosage: GENERIC
     Route: 065
     Dates: start: 2012
  15. TAMSULOSIN [Concomitant]
     Active Substance: TAMSULOSIN
     Indication: PROSTATE CANCER
     Dates: start: 2011
  16. ALBUTEROL. [Concomitant]
     Active Substance: ALBUTEROL
     Dates: start: 20100605
  17. PROAIR HFA [Concomitant]
     Active Substance: ALBUTEROL SULFATE
     Indication: ASTHMA
     Dates: start: 20110305
  18. PROAIR HFA [Concomitant]
     Active Substance: ALBUTEROL SULFATE
     Indication: ASTHMA
     Dates: start: 2011
  19. FUROSEMIDE. [Concomitant]
     Active Substance: FUROSEMIDE
     Dates: start: 20100415
  20. MILK THISTLE [Concomitant]
     Active Substance: DIETARY SUPPLEMENT\HERBALS\MILK THISTLE
     Indication: ROUTINE HEALTH MAINTENANCE
     Dates: start: 2013
  21. FOLIC ACID. [Concomitant]
     Active Substance: FOLIC ACID
     Dates: start: 20100305
  22. TAMSULOSIN [Concomitant]
     Active Substance: TAMSULOSIN
     Indication: PROSTATE CANCER
     Dates: start: 20100425
  23. LISINOPRIL. [Concomitant]
     Active Substance: LISINOPRIL
     Dates: start: 20100915
  24. TUMS [Concomitant]
     Active Substance: CALCIUM CARBONATE
     Indication: ROUTINE HEALTH MAINTENANCE
     Dates: start: 2013
  25. ADVAIR HFA [Concomitant]
     Active Substance: FLUTICASONE PROPIONATE\SALMETEROL XINAFOATE
     Dates: start: 20100906
  26. KLOR-CON [Concomitant]
     Active Substance: POTASSIUM CHLORIDE
     Dates: start: 20100705
  27. METHYLPREDNISOLON [Concomitant]
     Active Substance: METHYLPREDNISOLONE
     Dates: start: 20100425
  28. CEPHALEXIN. [Concomitant]
     Active Substance: CEPHALEXIN
     Dates: start: 20100425
  29. MONTELUKAST [Concomitant]
     Active Substance: MONTELUKAST SODIUM
     Indication: ASTHMA
     Dates: start: 2011
  30. VIAGRA [Concomitant]
     Active Substance: SILDENAFIL CITRATE
     Route: 048
     Dates: start: 20100501
  31. HYDROCHLOROTHIAZIDE. [Concomitant]
     Active Substance: HYDROCHLOROTHIAZIDE
     Dates: start: 20100505
  32. VENTOLIN [Concomitant]
     Active Substance: ALBUTEROL SULFATE
     Dates: start: 20101005
  33. PROCTOFOAM [Concomitant]
     Active Substance: PRAMOXINE HYDROCHLORIDE
     Dates: start: 20100425
  34. CRESTOR [Concomitant]
     Active Substance: ROSUVASTATIN CALCIUM
     Indication: BLOOD CHOLESTEROL
     Dates: start: 2011, end: 2018
  35. LORATADINE. [Concomitant]
     Active Substance: LORATADINE
     Dates: start: 20100425
  36. POTASSIUM [Concomitant]
     Active Substance: POTASSIUM
     Indication: HYPERTENSION
     Dates: start: 2011
  37. NEXIUM [Suspect]
     Active Substance: ESOMEPRAZOLE MAGNESIUM
     Indication: DYSPEPSIA
     Route: 048
     Dates: start: 20100111
  38. PRILOSEC [Suspect]
     Active Substance: OMEPRAZOLE MAGNESIUM
     Indication: DYSPEPSIA
     Route: 048
     Dates: start: 200803
  39. PRILOSEC [Suspect]
     Active Substance: OMEPRAZOLE MAGNESIUM
     Indication: DYSPEPSIA
     Dosage: GENERIC
     Route: 065
     Dates: start: 200806
  40. SYMBICORT [Concomitant]
     Active Substance: BUDESONIDE\FORMOTEROL FUMARATE DIHYDRATE
     Indication: ASTHMA
     Dates: start: 2011
  41. CIALIS [Concomitant]
     Active Substance: TADALAFIL
     Dates: start: 20100425

REACTIONS (2)
  - Chronic kidney disease [Not Recovered/Not Resolved]
  - Rebound acid hypersecretion [Unknown]

NARRATIVE: CASE EVENT DATE: 20150702
